FAERS Safety Report 22316252 (Version 2)
Quarter: 2023Q2

REPORT INFORMATION
  Report Type: Spontaneous
  Country: US (occurrence: US)
  Receive Date: 20230513
  Receipt Date: 20230522
  Transmission Date: 20230722
  Serious: No
  Sender: FDA-Public Use
  Company Number: US-JNJFOC-20230512715

PATIENT
  Age: 20 Year

DRUGS (2)
  1. MENS ROGAINE EXTRA STRENGTH [Suspect]
     Active Substance: MINOXIDIL
     Indication: Alopecia
     Dosage: ONE CAP FULL
     Route: 061
     Dates: start: 20220920
  2. MENS ROGAINE EXTRA STRENGTH [Suspect]
     Active Substance: MINOXIDIL
     Route: 061

REACTIONS (1)
  - Overdose [Unknown]

NARRATIVE: CASE EVENT DATE: 20220920
